FAERS Safety Report 16268548 (Version 1)
Quarter: 2019Q2

REPORT INFORMATION
  Report Type: Spontaneous
  Country: TW (occurrence: TW)
  Receive Date: 20190503
  Receipt Date: 20190503
  Transmission Date: 20190711
  Serious: Yes (Death, Other)
  Sender: FDA-Public Use
  Company Number: TW-BAYER-2019-082577

PATIENT
  Age: 64 Year
  Sex: Female

DRUGS (5)
  1. FLUOROURACIL. [Suspect]
     Active Substance: FLUOROURACIL
     Indication: COLORECTAL CANCER METASTATIC
     Dosage: UNKNOWN
     Dates: start: 201601
  2. STIVARGA [Suspect]
     Active Substance: REGORAFENIB
     Indication: COLORECTAL CANCER METASTATIC
     Dosage: 160 MG FOR 3 WEEKS
  3. CAMPTO [Suspect]
     Active Substance: IRINOTECAN
     Indication: COLORECTAL CANCER METASTATIC
     Dosage: 120 MG/M2
  4. AVASTIN [Concomitant]
     Active Substance: BEVACIZUMAB
  5. CAMPTO [Suspect]
     Active Substance: IRINOTECAN
     Indication: COLORECTAL CANCER METASTATIC
     Dosage: 160 MG/M2
     Dates: start: 201601

REACTIONS (3)
  - Palmar-plantar erythrodysaesthesia syndrome [None]
  - Neutropenia [None]
  - Death [Fatal]

NARRATIVE: CASE EVENT DATE: 2016
